FAERS Safety Report 9490412 (Version 1)
Quarter: 2013Q3

REPORT INFORMATION
  Report Type: Spontaneous
  Country: US (occurrence: None)
  Receive Date: 20130826
  Receipt Date: 20130826
  Transmission Date: 20140515
  Serious: Yes (Hospitalization, Other)
  Sender: FDA-Public Use
  Company Number: 201308000148

PATIENT
  Age: 15 Month
  Sex: Male

DRUGS (3)
  1. NITRIC OXIDE [Suspect]
     Indication: RESPIRATORY DISTRESS
     Dosage: 5 PPM, CONTINUOUS, INHALATION
  2. SILDENAFIL (SILDENAFIL) [Concomitant]
  3. SILDENAFIL (SILDENAFIL) [Concomitant]

REACTIONS (8)
  - Pulmonary oedema [None]
  - Off label use [None]
  - Pneumonia [None]
  - Respiratory tract infection viral [None]
  - Respiratory failure [None]
  - Mitral valve disease [None]
  - Condition aggravated [None]
  - Mitral valve stenosis [None]
